FAERS Safety Report 11993038 (Version 1)
Quarter: 2016Q1

REPORT INFORMATION
  Report Type: Spontaneous
  Country: CA (occurrence: CA)
  Receive Date: 20160203
  Receipt Date: 20160203
  Transmission Date: 20160526
  Serious: Yes (Other)
  Sender: FDA-Public Use
  Company Number: CA-TEVA-630875ACC

PATIENT
  Age: 85 Year
  Sex: Female
  Weight: 73.55 kg

DRUGS (11)
  1. ACETAMINOPHEN. [Concomitant]
     Active Substance: ACETAMINOPHEN
  2. CELEBREX [Concomitant]
     Active Substance: CELECOXIB
  3. CO PANTOPRAZOLE [Concomitant]
  4. CELECOXIB. [Suspect]
     Active Substance: CELECOXIB
     Indication: RHEUMATOID ARTHRITIS
     Dosage: 200 MILLIGRAM DAILY;
     Route: 048
  5. LYRICA [Concomitant]
     Active Substance: PREGABALIN
  6. MULTIVITAMINE(S) [Concomitant]
  7. CALCIUM [Concomitant]
     Active Substance: CALCIUM
  8. FLUVASTATIN [Concomitant]
     Active Substance: FLUVASTATIN SODIUM
  9. PREGABALIN. [Concomitant]
     Active Substance: PREGABALIN
  10. VAGIFEM [Concomitant]
     Active Substance: ESTRADIOL
     Route: 067
  11. VITAMIN D [Concomitant]
     Active Substance: CHOLECALCIFEROL

REACTIONS (2)
  - Disability [Unknown]
  - Pain [Unknown]
